FAERS Safety Report 23975692 (Version 4)
Quarter: 2025Q1

REPORT INFORMATION
  Report Type: Report from Study
  Country: US (occurrence: US)
  Receive Date: 20240614
  Receipt Date: 20250324
  Transmission Date: 20250409
  Serious: Yes (Hospitalization, Other)
  Sender: UCB
  Company Number: US-UCBSA-2024029199

PATIENT
  Sex: Male

DRUGS (2)
  1. BRIVARACETAM [Suspect]
     Active Substance: BRIVARACETAM
     Indication: Epilepsy
     Dosage: 100 MILLIGRAM, 2X/DAY (BID)
  2. BRIVARACETAM [Suspect]
     Active Substance: BRIVARACETAM
     Indication: Seizure
     Dosage: 50MG 3 TAB BID

REACTIONS (5)
  - Seizure [Unknown]
  - Product container seal issue [Unknown]
  - Wrong technique in product usage process [Unknown]
  - Prescribed overdose [Unknown]
  - Off label use [Unknown]
